FAERS Safety Report 6559109-9 (Version None)
Quarter: 2010Q1

REPORT INFORMATION
  Report Type: 
  Country: None (occurrence: None)
  Receive Date: 20100129
  Receipt Date: 20100120
  Transmission Date: 20100710
  Serious: Yes (Other)
  Sender: FDA-Public Use
  Company Number: CA-JNJCH-2010002044

PATIENT
  Age: 45 Year
  Sex: Female

DRUGS (1)
  1. ROLAIDS [Suspect]
     Indication: ABDOMINAL DISCOMFORT
     Dosage: TEXT:UNSPECIFIED
     Route: 048

REACTIONS (6)
  - ABDOMINAL PAIN UPPER [None]
  - BONE PAIN [None]
  - FATIGUE [None]
  - LOSS OF EMPLOYMENT [None]
  - PRODUCT QUALITY ISSUE [None]
  - VOMITING [None]
